FAERS Safety Report 19753586 (Version 1)
Quarter: 2021Q3

REPORT INFORMATION
  Report Type: Spontaneous
  Country: US (occurrence: US)
  Receive Date: 20210826
  Receipt Date: 20210826
  Transmission Date: 20211014
  Serious: No
  Sender: FDA-Public Use
  Company Number: None

PATIENT
  Age: 60 Year
  Sex: Female
  Weight: 67.5 kg

DRUGS (12)
  1. AIMOVIG [Suspect]
     Active Substance: ERENUMAB-AOOE
     Indication: HEADACHE
     Dosage: ?QUANTITY:1 INJECTION(S);?OTHER FREQUENCY:EVERY 28 DAYS;?
     Route: 058
     Dates: start: 20210820, end: 20210820
  2. MS CONTIN [Concomitant]
     Active Substance: MORPHINE SULFATE
  3. AFRIN [Concomitant]
     Active Substance: OXYMETAZOLINE
  4. PERCOCET [Concomitant]
     Active Substance: ACETAMINOPHEN\OXYCODONE HYDROCHLORIDE
  5. MAGNESIUM [Concomitant]
     Active Substance: MAGNESIUM
  6. PROZAC [Concomitant]
     Active Substance: FLUOXETINE HYDROCHLORIDE
  7. ZYPREXA [Concomitant]
     Active Substance: OLANZAPINE
  8. VITAMIN D [Concomitant]
     Active Substance: VITAMIN D NOS
  9. TYLENOL [Concomitant]
     Active Substance: ACETAMINOPHEN
  10. LEFT OCCIPITAL NERVE STIMULATOR [Concomitant]
  11. PACEMAKER [Concomitant]
     Active Substance: DEVICE
  12. SKELAXIN [Concomitant]
     Active Substance: METAXALONE

REACTIONS (2)
  - Condition aggravated [None]
  - Migraine [None]
